FAERS Safety Report 9282555 (Version 3)
Quarter: 2015Q3

REPORT INFORMATION
  Report Type: Spontaneous
  Country: US (occurrence: US)
  Receive Date: 20130510
  Receipt Date: 20150717
  Transmission Date: 20151125
  Serious: Yes (Hospitalization, Other)
  Sender: FDA-Public Use
  Company Number: US-BAYER-2013-057352

PATIENT
  Age: 28 Year
  Sex: Female
  Weight: 65.76 kg

DRUGS (7)
  1. PROZAC [Concomitant]
     Active Substance: FLUOXETINE HYDROCHLORIDE
  2. XANAX [Concomitant]
     Active Substance: ALPRAZOLAM
  3. DILAUDID [Concomitant]
     Active Substance: HYDROMORPHONE HYDROCHLORIDE
     Indication: PAIN
  4. VALIUM [Concomitant]
     Active Substance: DIAZEPAM
  5. MOTRIN [Concomitant]
     Active Substance: IBUPROFEN
  6. OCELLA [Suspect]
     Active Substance: DROSPIRENONE\ETHINYL ESTRADIOL
     Dosage: UNK
     Dates: start: 200807, end: 200911
  7. WELLBUTRIN [Concomitant]
     Active Substance: BUPROPION HYDROCHLORIDE
     Dosage: 300 MG, DAILY
     Route: 048

REACTIONS (7)
  - Pulmonary embolism [Recovered/Resolved]
  - Cholecystitis chronic [None]
  - General physical health deterioration [Recovered/Resolved]
  - Musculoskeletal pain [Recovered/Resolved]
  - Injury [Recovered/Resolved]
  - Abdominal pain [None]
  - Chest pain [Recovered/Resolved]

NARRATIVE: CASE EVENT DATE: 20091102
